FAERS Safety Report 15423830 (Version 1)
Quarter: 2018Q3

REPORT INFORMATION
  Report Type: Report from Study
  Country: JP (occurrence: JP)
  Receive Date: 20180925
  Receipt Date: 20180925
  Transmission Date: 20181010
  Serious: Yes (Disabling, Other)
  Sender: FDA-Public Use
  Company Number: JP-INCYTE CORPORATION-2018IN009726

PATIENT

DRUGS (2)
  1. JAKAVI [Suspect]
     Active Substance: RUXOLITINIB
     Dosage: 15 MG, BID
     Route: 048
     Dates: start: 20170428
  2. JAKAVI [Suspect]
     Active Substance: RUXOLITINIB
     Indication: POLYCYTHAEMIA VERA
     Dosage: 10 MG, BID
     Route: 048
     Dates: start: 20170407, end: 20170427

REACTIONS (3)
  - Thalamus haemorrhage [Recovering/Resolving]
  - Atrial fibrillation [Recovered/Resolved]
  - Blood pressure systolic increased [Unknown]

NARRATIVE: CASE EVENT DATE: 20170818
